FAERS Safety Report 5464188-6 (Version None)
Quarter: 2007Q3

REPORT INFORMATION
  Report Type: 
  Country: None (occurrence: None)
  Receive Date: 20070921
  Receipt Date: 20070910
  Transmission Date: 20080115
  Serious: Yes (Other)
  Sender: FDA-Public Use
  Company Number: FR-AVENTIS-200712893FR

PATIENT
  Age: 84 Year
  Sex: Female

DRUGS (7)
  1. CALSYN                             /00371903/ [Suspect]
     Indication: SPINAL FRACTURE
     Dates: start: 20070101, end: 20070101
  2. CALSYN                             /00371903/ [Suspect]
     Dates: start: 20070101, end: 20070101
  3. PREVISCAN                          /00789001/ [Suspect]
     Indication: ATRIAL FIBRILLATION
     Route: 048
  4. PREVISCAN                          /00789001/ [Concomitant]
  5. DIGITALIN [Concomitant]
     Route: 048
  6. ANTIHYPERTENSIVES [Concomitant]
  7. DIURETICS [Concomitant]
     Indication: HYPERTENSION
     Route: 048

REACTIONS (2)
  - DRUG INTERACTION [None]
  - INTERNATIONAL NORMALISED RATIO INCREASED [None]
